FAERS Safety Report 4385757-0 (Version None)
Quarter: 2004Q2

REPORT INFORMATION
  Report Type: 
  Country: None (occurrence: None)
  Receive Date: 20040623
  Receipt Date: 20040614
  Transmission Date: 20050107
  Serious: Yes (Other)
  Sender: FDA-Public Use
  Company Number: TUK2004A00070

PATIENT
  Age: 48 Year
  Sex: Male

DRUGS (1)
  1. ACTOS [Suspect]
     Indication: DIABETES MELLITUS
     Dosage: 30 MG ORAL; DAYS
     Route: 048
     Dates: start: 20040113, end: 20040524

REACTIONS (2)
  - ARTHRALGIA [None]
  - VISION BLURRED [None]
